FAERS Safety Report 4660814-X (Version None)
Quarter: 2005Q2

REPORT INFORMATION
  Report Type: 
  Country: None (occurrence: None)
  Receive Date: 20050511
  Receipt Date: 20050509
  Transmission Date: 20051028
  Serious: Yes (Other)
  Sender: FDA-Public Use
  Company Number: 210390

PATIENT
  Sex: Male

DRUGS (1)
  1. RITUXAN [Suspect]

REACTIONS (2)
  - MISCARRIAGE OF PARTNER [None]
  - TRANSMISSION OF DRUG VIA SEMEN [None]
